FAERS Safety Report 10090123 (Version 1)
Quarter: 2014Q2

REPORT INFORMATION
  Report Type: Spontaneous
  Country: US (occurrence: None)
  Receive Date: 20140410
  Receipt Date: 20140410
  Transmission Date: 20141212
  Serious: Yes (Other)
  Sender: FDA-Public Use
  Company Number: 1198420

PATIENT
  Age: 49 Year
  Sex: Female

DRUGS (15)
  1. ROCEPHIN [Suspect]
     Indication: PRODUCT USED FOR UNKNOWN INDICATION
  2. LYRICA (PREGABALIN) [Concomitant]
  3. LORTAB (HYDROCODONE TARTRATE, PARACETAMOL) [Concomitant]
  4. NORCO (HYDROCODOE TARTRATE, PARACETAMOL) [Concomitant]
  5. LASIX (FUROSEMIDE) [Concomitant]
  6. TYLENOL (PARACETAMOL) [Concomitant]
  7. XANAX (ALPRAZOLAM) [Concomitant]
  8. WELLBUTRIN (BUPROPION HYDROCHLORIDE) [Concomitant]
  9. PROZAC (FLUOXETINE HYDROCHLORIDE) [Concomitant]
  10. HUMALOG (LISPRO INSULIN) (KWIKPEN) [Concomitant]
  11. JANUVIA (SITAGLIPTIN PHOSPHATE) [Concomitant]
  12. LANTUS (INSULIN GLARGINE) [Concomitant]
  13. INSULIN (INSULIN) [Concomitant]
  14. VITAMIN B12 (CYANOCOBALAMIN) [Concomitant]
  15. IBUPROFEN (IBUPROFEN) [Concomitant]

REACTIONS (1)
  - Anaphylactic reaction [None]
